FAERS Safety Report 9549149 (Version 1)
Quarter: 2013Q3

REPORT INFORMATION
  Report Type: Spontaneous
  Country: US (occurrence: US)
  Receive Date: 20130924
  Receipt Date: 20130924
  Transmission Date: 20140515
  Serious: No
  Sender: FDA-Public Use
  Company Number: US-009507513-1309USA009231

PATIENT
  Age: 42 Year
  Sex: Female

DRUGS (2)
  1. PROVENTIL [Suspect]
     Indication: ASTHMA
     Dosage: 1 TO 2 PUFFS EVERY 4 TO 6 HOURS AS NEEDED
     Route: 055
  2. FLOVENT [Concomitant]

REACTIONS (3)
  - Dyspnoea [Recovered/Resolved]
  - Drug dose omission [Unknown]
  - Product quality issue [Unknown]
